FAERS Safety Report 11860393 (Version 1)
Quarter: 2015Q4

REPORT INFORMATION
  Report Type: Spontaneous
  Country: US (occurrence: US)
  Receive Date: 20151222
  Receipt Date: 20151222
  Transmission Date: 20160305
  Serious: No
  Sender: FDA-Public Use
  Company Number: US-009507513-2006SP007132

PATIENT
  Age: 35 Year
  Sex: Female

DRUGS (7)
  1. REBETOL [Suspect]
     Active Substance: RIBAVIRIN
     Indication: PRODUCT USED FOR UNKNOWN INDICATION
     Dosage: 1000 MG, QD
     Route: 048
     Dates: start: 200312, end: 20040607
  2. METHADONE HYDROCHLORIDE. [Concomitant]
     Active Substance: METHADONE HYDROCHLORIDE
     Dosage: 90 MG, QD
     Dates: start: 2002
  3. ALDACTONE [Concomitant]
     Active Substance: SPIRONOLACTONE
  4. NEXIUM [Concomitant]
     Active Substance: ESOMEPRAZOLE MAGNESIUM
     Indication: GASTROOESOPHAGEAL REFLUX DISEASE
     Dosage: 40 MG, QD
  5. PEGINTRON [Suspect]
     Active Substance: PEGINTERFERON ALFA-2B
     Indication: PRODUCT USED FOR UNKNOWN INDICATION
     Dosage: 120 ?G, QW
     Dates: start: 200312, end: 20040607
  6. MINERALS (UNSPECIFIED) (+) VITAMINS (UNSPECIFIED) [Concomitant]
  7. EPOETIN ALFA [Concomitant]
     Active Substance: ERYTHROPOIETIN
     Indication: BLOOD IRON DECREASED
     Dosage: 4000 UNK, QW

REACTIONS (2)
  - No adverse event [Recovered/Resolved]
  - Maternal exposure before pregnancy [Recovered/Resolved]
